FAERS Safety Report 16373180 (Version 1)
Quarter: 2019Q2

REPORT INFORMATION
  Report Type: Report from Study
  Country: ES (occurrence: ES)
  Receive Date: 20190530
  Receipt Date: 20190530
  Transmission Date: 20190711
  Serious: Yes (Hospitalization)
  Sender: FDA-Public Use
  Company Number: ES-TEVA-2019-ES-1056010

PATIENT
  Age: 84 Year
  Sex: Male

DRUGS (6)
  1. AMIODARONA HIDROCLORURO (392CH) [Interacting]
     Active Substance: AMIODARONE
     Indication: ATRIAL FIBRILLATION
     Dosage: 600 MILLIGRAM FOR EVERY 1 DAYS
     Route: 048
     Dates: start: 201406
  2. BISOPROLOL (2328A) [Concomitant]
     Active Substance: BISOPROLOL
     Indication: ATRIAL FIBRILLATION
     Dosage: 1.25 MILLIGRAM FOR EVERY 1 DAYS
     Route: 048
     Dates: start: 201606
  3. LOSARTAN (7157A) [Concomitant]
     Active Substance: LOSARTAN
     Indication: HYPERTENSION
     Dosage: 50 MILLIGRAM FOR EVERY 1 DAYS
     Route: 048
     Dates: start: 201506
  4. FUROSEMIDA (1615A) [Concomitant]
     Active Substance: FUROSEMIDE
     Indication: HYPERTENSION
     Dosage: 40 MILLIGRAM FOR EVERY 1 DAYS
     Route: 048
     Dates: start: 2013
  5. SERTRALINE [Suspect]
     Active Substance: SERTRALINE HYDROCHLORIDE
     Indication: ANXIETY
     Dosage: 25MILLIGRAM FOR EVERY 1 DAYS
     Route: 048
     Dates: start: 201806
  6. ALDOCUMAR 1 MG COMPRIMIDOS, 40 COMPRIMIDOS [Interacting]
     Active Substance: WARFARIN SODIUM
     Indication: ATRIAL FIBRILLATION
     Route: 048
     Dates: start: 2014

REACTIONS (3)
  - Ecchymosis [Recovered/Resolved]
  - Anticoagulation drug level above therapeutic [Recovered/Resolved]
  - Drug interaction [Unknown]

NARRATIVE: CASE EVENT DATE: 20190130
